FAERS Safety Report 5176898-9 (Version None)
Quarter: 2006Q4

REPORT INFORMATION
  Report Type: 
  Country: None (occurrence: None)
  Receive Date: 20061212
  Receipt Date: 20061212
  Transmission Date: 20070319
  Serious: Yes (Other)
  Sender: FDA-Public Use
  Company Number: None

PATIENT
  Age: 63 Year
  Sex: Female
  Weight: 64.4108 kg

DRUGS (2)
  1. LEUKINE [Suspect]
     Indication: HODGKIN'S DISEASE
     Dosage: 500 MCG DAILY SQ
     Route: 058
     Dates: start: 20061022
  2. LEUKINE [Suspect]
     Indication: NEUTROPENIA
     Dosage: 500 MCG DAILY SQ
     Route: 058
     Dates: start: 20061022

REACTIONS (3)
  - CHEST PAIN [None]
  - DYSPNOEA [None]
  - HYPERHIDROSIS [None]
